FAERS Safety Report 18080677 (Version 1)
Quarter: 2020Q3

REPORT INFORMATION
  Report Type: Other
  Country: GB (occurrence: GB)
  Receive Date: 20200728
  Receipt Date: 20200728
  Transmission Date: 20201103
  Serious: Yes (Other)
  Sender: FDA-Public Use
  Company Number: GB-GLENMARK PHARMACEUTICALS-2019GMK042282

PATIENT

DRUGS (1)
  1. GABAPENTIN. [Suspect]
     Active Substance: GABAPENTIN
     Indication: PRODUCT USED FOR UNKNOWN INDICATION
     Dosage: 300 MG, OD
     Route: 065
     Dates: start: 2019

REACTIONS (4)
  - Cerebrovascular accident [Unknown]
  - Product dispensing error [Unknown]
  - Malaise [Unknown]
  - Communication disorder [Unknown]

NARRATIVE: CASE EVENT DATE: 2019
